FAERS Safety Report 9665964 (Version 2)
Quarter: 2013Q4

REPORT INFORMATION
  Report Type: Report from Study
  Country: JP (occurrence: JP)
  Receive Date: 20131104
  Receipt Date: 20131210
  Transmission Date: 20140711
  Serious: Yes (Hospitalization)
  Sender: FDA-Public Use
  Company Number: JP-AMGEN-JPNCT2013077401

PATIENT
  Age: 75 Year
  Sex: Male
  Weight: 57 kg

DRUGS (2)
  1. ROMIPLOSTIM - KHK [Suspect]
     Indication: IMMUNE THROMBOCYTOPENIC PURPURA
     Dosage: 5 MUG/KG, QWK
     Route: 058
     Dates: start: 20130313, end: 20130814
  2. PREDONINE                          /00016201/ [Concomitant]
     Indication: IMMUNE THROMBOCYTOPENIC PURPURA
     Dosage: 20 MG, UNK
     Route: 048
     Dates: start: 20130818, end: 20130903

REACTIONS (3)
  - Platelet count decreased [Not Recovered/Not Resolved]
  - Disseminated intravascular coagulation [Recovered/Resolved]
  - Infection [Recovered/Resolved]
